FAERS Safety Report 4860758-4 (Version None)
Quarter: 2005Q4

REPORT INFORMATION
  Report Type: 
  Country: None (occurrence: None)
  Receive Date: 20051216
  Receipt Date: 20051130
  Transmission Date: 20060501
  Serious: Yes (Life-Threatening)
  Sender: FDA-Public Use
  Company Number: 2005161361

PATIENT
  Age: 77 Year
  Sex: Female
  Weight: 49 kg

DRUGS (1)
  1. CAMPTOSAR [Suspect]
     Indication: COLON CANCER
     Dosage: 100 MG/M2 (100 MG/M2, 1 IN 1 WK), INTRAVENOUS
     Route: 042
     Dates: start: 20051101, end: 20051108

REACTIONS (12)
  - ATRIAL FIBRILLATION [None]
  - BONE MARROW FAILURE [None]
  - COAGULOPATHY [None]
  - DEPRESSED LEVEL OF CONSCIOUSNESS [None]
  - DISSEMINATED INTRAVASCULAR COAGULATION [None]
  - ENTEROCOLITIS [None]
  - EPILEPSY [None]
  - LEUKOPENIA [None]
  - NEUTROPHIL COUNT DECREASED [None]
  - RESPIRATORY DEPRESSION [None]
  - SEPSIS [None]
  - TACHYCARDIA [None]
